FAERS Safety Report 23384296 (Version 1)
Quarter: 2024Q1

REPORT INFORMATION
  Report Type: Spontaneous
  Country: NL (occurrence: NL)
  Receive Date: 20240109
  Receipt Date: 20240109
  Transmission Date: 20240409
  Serious: Yes (Life-Threatening, Hospitalization, Other)
  Sender: FDA-Public Use
  Company Number: NL-UNICHEM-2023-UNICHEM-000938

PATIENT
  Age: 38 Year
  Sex: Female

DRUGS (1)
  1. FLUOXETINE HYDROCHLORIDE [Suspect]
     Active Substance: FLUOXETINE HYDROCHLORIDE
     Indication: Panic attack
     Dosage: WITH THE DOSAGE INCREASED 11 WEEKS EARLIER DUE TO A SEVERE PANIC ATTACK
     Route: 065

REACTIONS (10)
  - Serotonin syndrome [Unknown]
  - Hyperthermia [Unknown]
  - Myoclonus [Recovered/Resolved]
  - Rhabdomyolysis [Unknown]
  - COVID-19 [Unknown]
  - Drug level increased [Unknown]
  - Hypometabolism [Unknown]
  - Tremor [Unknown]
  - Palpitations [Unknown]
  - Weight decreased [Unknown]
